FAERS Safety Report 6610342-7 (Version None)
Quarter: 2010Q1

REPORT INFORMATION
  Report Type: 
  Country: None (occurrence: None)
  Receive Date: 20100302
  Receipt Date: 20100301
  Transmission Date: 20100710
  Serious: Yes (Other)
  Sender: FDA-Public Use
  Company Number: GXKR2010DE02360

PATIENT
  Age: 66 Year
  Sex: Female

DRUGS (1)
  1. TRAMADOL 1A PHARMA (NGX) [Suspect]
     Dosage: 150 MG, UNK

REACTIONS (4)
  - CIRCULATORY COLLAPSE [None]
  - DRY MOUTH [None]
  - RASH [None]
  - SOMNOLENCE [None]
